FAERS Safety Report 4579011-1 (Version None)
Quarter: 2005Q1

REPORT INFORMATION
  Report Type: 
  Country: None (occurrence: None)
  Receive Date: 20050119
  Receipt Date: 20040609
  Transmission Date: 20050727
  Serious: Yes (Hospitalization, Disabling)
  Sender: FDA-Public Use
  Company Number: A03200401855

PATIENT
  Age: 42 Year
  Sex: Male
  Weight: 150 kg

DRUGS (4)
  1. PLAVIX [Suspect]
     Indication: CORONARY ANGIOPLASTY
     Dosage: LOADING DOSE: 300 MG, FREQUENCY: ONCE - ORAL
     Route: 048
     Dates: start: 20040608, end: 20040608
  2. PLAVIX [Suspect]
     Indication: STENT PLACEMENT
     Dosage: LOADING DOSE: 300 MG, FREQUENCY: ONCE - ORAL
     Route: 048
     Dates: start: 20040608, end: 20040608
  3. EPTIFIBATIDE [Concomitant]
  4. HEPARIN [Concomitant]

REACTIONS (1)
  - POST PROCEDURAL HAEMORRHAGE [None]
